FAERS Safety Report 6968881-5 (Version None)
Quarter: 2010Q3

REPORT INFORMATION
  Report Type: 
  Country: None (occurrence: None)
  Receive Date: 20100907
  Receipt Date: 20100826
  Transmission Date: 20110219
  Serious: Yes (Other)
  Sender: FDA-Public Use
  Company Number: CN-PFIZER INC-2010107398

PATIENT
  Age: 75 Year
  Sex: Female

DRUGS (1)
  1. GLUCOTROL [Suspect]
     Indication: BLOOD GLUCOSE INCREASED
     Dosage: 5 MG
     Route: 048

REACTIONS (6)
  - ARTHRALGIA [None]
  - DRUG ERUPTION [None]
  - DRUG PRESCRIBING ERROR [None]
  - HYPOGLYCAEMIA [None]
  - PAIN [None]
  - PYREXIA [None]
